FAERS Safety Report 6123653-9 (Version None)
Quarter: 2009Q1

REPORT INFORMATION
  Report Type: 
  Country: None (occurrence: None)
  Receive Date: 20090319
  Receipt Date: 20090317
  Transmission Date: 20090719
  Serious: Yes (Other)
  Sender: FDA-Public Use
  Company Number: US-JNJFOC-20090107259

PATIENT
  Age: 78 Year
  Sex: Male
  Weight: 64.41 kg

DRUGS (2)
  1. TYLENOL ALLERGY MULTI-SYMPTOM RAPID RELEASE [Suspect]
     Indication: NASOPHARYNGITIS
     Route: 048
  2. TYLENOL ALLERGY MULTI-SYMPTOM RAPID RELEASE [Suspect]
     Indication: MULTIPLE ALLERGIES
     Route: 048

REACTIONS (2)
  - BACK PAIN [None]
  - DYSURIA [None]
